FAERS Safety Report 6416150-4 (Version None)
Quarter: 2009Q4

REPORT INFORMATION
  Report Type: 
  Country: None (occurrence: None)
  Receive Date: 20091027
  Receipt Date: 20091020
  Transmission Date: 20100525
  Serious: Yes (Death, Hospitalization)
  Sender: FDA-Public Use
  Company Number: FR-BRISTOL-MYERS SQUIBB COMPANY-14826309

PATIENT
  Age: 54 Year
  Sex: Female

DRUGS (2)
  1. TAXOL [Suspect]
     Indication: MALIGNANT PERITONEAL NEOPLASM
     Dosage: 2ND COURSE,WKLY 3WKS OUT OF 4 ACCORDING TO MILLER'S REGIMEN GIVEN ON 5,12,19AUG08.NEXT ON 02SEP08.
     Route: 042
  2. AVASTIN [Suspect]
     Indication: MALIGNANT PERITONEAL NEOPLASM
     Dosage: 2ND COURSE,WKLY 3WKS OUT OF 4 ACCORDING TO MILLER'S REGIMEN GIVEN ON 5,12,19AUG08.NEXT ON 02SEP08.
     Route: 042

REACTIONS (4)
  - LEUKOENCEPHALOPATHY [None]
  - RENAL FAILURE CHRONIC [None]
  - SUBARACHNOID HAEMORRHAGE [None]
  - THROMBOCYTOPENIA [None]
